FAERS Safety Report 7270335-6 (Version None)
Quarter: 2011Q1

REPORT INFORMATION
  Report Type: 
  Country: None (occurrence: None)
  Receive Date: 20110202
  Receipt Date: 20110104
  Transmission Date: 20110831
  Serious: Yes (Hospitalization, Other)
  Sender: FDA-Public Use
  Company Number: US-BAYER-200941471NA

PATIENT
  Sex: Female
  Weight: 68 kg

DRUGS (9)
  1. YAZ [Suspect]
     Indication: PREMENSTRUAL SYNDROME
     Route: 048
     Dates: start: 20081001, end: 20090401
  2. YAZ [Suspect]
     Indication: CONTRACEPTION
  3. TORADOL [Concomitant]
     Indication: PRODUCT USED FOR UNKNOWN INDICATION
     Dates: start: 20090401
  4. MOTRIN [Concomitant]
     Indication: PRODUCT USED FOR UNKNOWN INDICATION
     Dosage: 600 MG, TID
     Dates: start: 20090424
  5. UNCODEABLE ^UNCLASSIFIABLE^ [Concomitant]
     Indication: PRODUCT USED FOR UNKNOWN INDICATION
     Dates: start: 20090401
  6. MULTI-VITAMIN [Concomitant]
     Indication: PRODUCT USED FOR UNKNOWN INDICATION
  7. YAZ [Suspect]
     Indication: ENDOMETRIOSIS
  8. ZOFRAN [Concomitant]
     Indication: PRODUCT USED FOR UNKNOWN INDICATION
     Dates: start: 20090401
  9. RESTORIL [Concomitant]
     Indication: PRODUCT USED FOR UNKNOWN INDICATION
     Dates: start: 20090401

REACTIONS (5)
  - PAIN IN EXTREMITY [None]
  - DYSPNOEA [None]
  - PULMONARY EMBOLISM [None]
  - CHEST PAIN [None]
  - DEEP VEIN THROMBOSIS [None]
